FAERS Safety Report 9889629 (Version 1)
Quarter: 2014Q1

REPORT INFORMATION
  Report Type: Spontaneous
  Country: US (occurrence: US)
  Receive Date: 20140211
  Receipt Date: 20140211
  Transmission Date: 20141002
  Serious: Yes (Disabling, Other)
  Sender: FDA-Public Use
  Company Number: US-GE HEALTHCARE MEDICAL DIAGNOSTICS-OSCN-PR-0906S-0299

PATIENT
  Age: 47 Year
  Sex: Male

DRUGS (14)
  1. GADOLINIUM (UNSPECIFIED) [Suspect]
     Indication: RENAL TRANSPLANT
     Route: 042
     Dates: start: 20040120, end: 20040120
  2. GADOLINIUM (UNSPECIFIED) [Suspect]
     Indication: INFERIOR VENA CAVAL OCCLUSION
     Route: 042
     Dates: start: 20040301, end: 20040301
  3. GADOLINIUM (UNSPECIFIED) [Suspect]
     Indication: ILIAC VEIN OCCLUSION
     Route: 042
     Dates: start: 20040429, end: 20040429
  4. GADOLINIUM (UNSPECIFIED) [Suspect]
     Indication: VENOUS THROMBOSIS
  5. GADOLINIUM (UNSPECIFIED) [Suspect]
     Indication: LOCAL SWELLING
  6. RENAGEL [Concomitant]
     Indication: PRODUCT USED FOR UNKNOWN INDICATION
  7. EPOGEN [Concomitant]
     Indication: PRODUCT USED FOR UNKNOWN INDICATION
  8. PROGRAF [Concomitant]
     Indication: PRODUCT USED FOR UNKNOWN INDICATION
  9. CELLCEPT [Concomitant]
     Indication: PRODUCT USED FOR UNKNOWN INDICATION
  10. SENSIPAR [Concomitant]
     Indication: PRODUCT USED FOR UNKNOWN INDICATION
  11. FAMOTIDINE [Concomitant]
     Indication: PRODUCT USED FOR UNKNOWN INDICATION
  12. LEVOTHYROXINE [Concomitant]
     Indication: PRODUCT USED FOR UNKNOWN INDICATION
  13. IRON [Concomitant]
     Indication: PRODUCT USED FOR UNKNOWN INDICATION
  14. VITAMINS [Concomitant]
     Indication: PRODUCT USED FOR UNKNOWN INDICATION

REACTIONS (1)
  - Nephrogenic systemic fibrosis [Not Recovered/Not Resolved]
